FAERS Safety Report 14581416 (Version 1)
Quarter: 2018Q1

REPORT INFORMATION
  Report Type: Spontaneous
  Country: JP (occurrence: JP)
  Receive Date: 20180228
  Receipt Date: 20180228
  Transmission Date: 20180509
  Serious: Yes (Other)
  Sender: FDA-Public Use
  Company Number: JP-ASTRAZENECA-2018SE17262

PATIENT
  Age: 29864 Day
  Sex: Female

DRUGS (6)
  1. TOVIAZ [Suspect]
     Active Substance: FESOTERODINE FUMARATE
     Route: 048
  2. IRESSA [Suspect]
     Active Substance: GEFITINIB
     Indication: NON-SMALL CELL LUNG CANCER
     Dosage: 250 MG ONCE EVERY TWO DAYS
     Route: 048
     Dates: start: 20170606, end: 20170608
  3. IRESSA [Suspect]
     Active Substance: GEFITINIB
     Indication: NON-SMALL CELL LUNG CANCER
     Route: 048
     Dates: start: 20160805, end: 20170307
  4. NORVASC [Suspect]
     Active Substance: AMLODIPINE BESYLATE
     Route: 048
  5. REBAMIPIDE [Suspect]
     Active Substance: REBAMIPIDE
     Route: 048
  6. IRESSA [Suspect]
     Active Substance: GEFITINIB
     Indication: NON-SMALL CELL LUNG CANCER
     Dosage: 250 MG ONCE EVERY THREE DAYS
     Route: 048
     Dates: start: 20170321, end: 20170605

REACTIONS (3)
  - Lung disorder [Recovering/Resolving]
  - Malaise [Recovered/Resolved]
  - Rash [Not Recovered/Not Resolved]

NARRATIVE: CASE EVENT DATE: 20160826
